FAERS Safety Report 4990276-4 (Version None)
Quarter: 2006Q2

REPORT INFORMATION
  Report Type: 
  Country: None (occurrence: None)
  Receive Date: 20060503
  Receipt Date: 20060424
  Transmission Date: 20061013
  Serious: Yes (Hospitalization, Disabling)
  Sender: FDA-Public Use
  Company Number: FR-GLAXOSMITHKLINE-B0421122A

PATIENT
  Age: 3 Month
  Sex: Female

DRUGS (4)
  1. RETROVIR [Suspect]
     Indication: ANTIVIRAL PROPHYLAXIS
     Route: 048
     Dates: start: 20030114, end: 20030224
  2. COMBIVIR [Suspect]
     Indication: HIV INFECTION
     Dates: start: 20021101, end: 20030114
  3. RETROVIR [Suspect]
     Indication: HIV INFECTION
     Dates: start: 20030114, end: 20030114
  4. VIRACEPT [Suspect]
     Indication: HIV INFECTION
     Dates: start: 20021101, end: 20030114

REACTIONS (7)
  - CONVULSION [None]
  - DRUG EXPOSURE DURING PREGNANCY [None]
  - EYE MOVEMENT DISORDER [None]
  - HYPERTONIA [None]
  - NUCLEAR MAGNETIC RESONANCE IMAGING BRAIN ABNORMAL [None]
  - PSYCHOMOTOR RETARDATION [None]
  - RETINOGRAM ABNORMAL [None]
